FAERS Safety Report 17517343 (Version 1)
Quarter: 2020Q1

REPORT INFORMATION
  Report Type: Spontaneous
  Country: US (occurrence: US)
  Receive Date: 20200228
  Receipt Date: 20200228
  Transmission Date: 20200409
  Serious: No
  Sender: FDA-Public Use
  Company Number: None

PATIENT
  Age: 39 Year
  Sex: Female

DRUGS (1)
  1. REMICADE [Suspect]
     Active Substance: INFLIXIMAB
     Indication: CROHN^S DISEASE
     Dosage: ?          OTHER FREQUENCY:OTHER;?
     Route: 042
     Dates: start: 202002

REACTIONS (2)
  - Product dose omission [None]
  - Product dispensing error [None]

NARRATIVE: CASE EVENT DATE: 20200228
